FAERS Safety Report 9924390 (Version 3)
Quarter: 2014Q2

REPORT INFORMATION
  Report Type: Report from Study
  Country: CN (occurrence: CN)
  Receive Date: 20140226
  Receipt Date: 20140423
  Transmission Date: 20141212
  Serious: Yes (Death, Life-Threatening, Hospitalization)
  Sender: FDA-Public Use
  Company Number: CN-CELGENEUS-035-21660-14012400

PATIENT
  Age: 60 Year
  Sex: Male

DRUGS (4)
  1. ABRAXANE [Suspect]
     Indication: SQUAMOUS CELL CARCINOMA OF LUNG
     Route: 041
     Dates: start: 20110704
  2. ABRAXANE [Suspect]
     Route: 041
     Dates: start: 20110815
  3. CARBOPLATIN [Suspect]
     Indication: SQUAMOUS CELL CARCINOMA OF LUNG
     Route: 065
     Dates: start: 20110704
  4. CARBOPLATIN [Suspect]
     Route: 065
     Dates: start: 20110815

REACTIONS (1)
  - Febrile neutropenia [Fatal]
